FAERS Safety Report 11484701 (Version 1)
Quarter: 2015Q3

REPORT INFORMATION
  Report Type: Spontaneous
  Country: US (occurrence: US)
  Receive Date: 20150903
  Receipt Date: 20150903
  Transmission Date: 20151125
  Serious: No
  Sender: FDA-Public Use
  Company Number: US-ELI_LILLY_AND_COMPANY-US201112000622

PATIENT
  Age: 58 Year
  Sex: Male
  Weight: 105.22 kg

DRUGS (10)
  1. TRAMADOL. [Concomitant]
     Active Substance: TRAMADOL
  2. LASIX [Concomitant]
     Active Substance: FUROSEMIDE
  3. CYMBALTA [Suspect]
     Active Substance: DULOXETINE HYDROCHLORIDE
     Indication: NEUROPATHY PERIPHERAL
     Dosage: 30 MG, BID
     Dates: start: 201105
  4. CYMBALTA [Suspect]
     Active Substance: DULOXETINE HYDROCHLORIDE
     Dosage: 30 MG, BID
     Dates: end: 201201
  5. CYMBALTA [Suspect]
     Active Substance: DULOXETINE HYDROCHLORIDE
     Dosage: 30 MG, TID
  6. CYMBALTA [Suspect]
     Active Substance: DULOXETINE HYDROCHLORIDE
     Dosage: 60 MG, QD
  7. GABAPENTIN. [Concomitant]
     Active Substance: GABAPENTIN
  8. SPIRONOLACTONE. [Concomitant]
     Active Substance: SPIRONOLACTONE
  9. CARVEDILOL. [Concomitant]
     Active Substance: CARVEDILOL
  10. GLIPIZIDE. [Concomitant]
     Active Substance: GLIPIZIDE

REACTIONS (11)
  - Arthralgia [Not Recovered/Not Resolved]
  - Fall [Unknown]
  - Blood glucose increased [Recovering/Resolving]
  - Drug withdrawal syndrome [Recovered/Resolved]
  - Crying [Recovered/Resolved]
  - Feeling abnormal [Recovered/Resolved]
  - Extra dose administered [Recovered/Resolved]
  - Depression [Recovered/Resolved]
  - Drug dose omission [Not Recovered/Not Resolved]
  - Drug effect decreased [Not Recovered/Not Resolved]
  - Vision blurred [Unknown]
